FAERS Safety Report 6121256-3 (Version None)
Quarter: 2009Q1

REPORT INFORMATION
  Report Type: 
  Country: None (occurrence: None)
  Receive Date: 20090317
  Receipt Date: 20090309
  Transmission Date: 20090719
  Serious: Yes (Hospitalization)
  Sender: FDA-Public Use
  Company Number: US-ELI_LILLY_AND_COMPANY-US200903002200

PATIENT
  Sex: Female

DRUGS (2)
  1. HUMALOG [Suspect]
     Indication: DIABETES MELLITUS
     Dosage: UNK, UNK
     Dates: start: 19990101
  2. LANTUS [Concomitant]

REACTIONS (4)
  - BALANCE DISORDER [None]
  - CHOLECYSTECTOMY [None]
  - HYPERMETROPIA [None]
  - VISUAL ACUITY REDUCED [None]
